FAERS Safety Report 17487372 (Version 3)
Quarter: 2022Q1

REPORT INFORMATION
  Report Type: Spontaneous
  Country: US (occurrence: US)
  Receive Date: 20200303
  Receipt Date: 20220128
  Transmission Date: 20220424
  Serious: No
  Sender: FDA-Public Use
  Company Number: US-BAUSCH-BL-2020-004140

PATIENT
  Age: 38 Year
  Sex: Female
  Weight: 56.750 kg

DRUGS (1)
  1. LUMIFY [Suspect]
     Active Substance: BRIMONIDINE TARTRATE
     Indication: Ocular hyperaemia
     Dosage: 1 DROP IN EACH EYE, SOMETIMES USES AN ADDITIONAL DROP IN THE EYE WITH THE LITTLE WHITE BALL
     Route: 047
     Dates: start: 2019

REACTIONS (5)
  - Eye disorder [Not Recovered/Not Resolved]
  - Instillation site pain [Recovered/Resolved]
  - Instillation site pruritus [Unknown]
  - Inappropriate schedule of product administration [Unknown]
  - Product counterfeit [Unknown]

NARRATIVE: CASE EVENT DATE: 20200101
